FAERS Safety Report 7396257-8 (Version None)
Quarter: 2011Q2

REPORT INFORMATION
  Report Type: 
  Country: None (occurrence: None)
  Receive Date: 20110406
  Receipt Date: 20110328
  Transmission Date: 20111010
  Serious: Yes (Hospitalization)
  Sender: FDA-Public Use
  Company Number: US-JNJFOC-2011002528

PATIENT
  Age: 87 Year
  Sex: Male
  Weight: 95.3 kg

DRUGS (10)
  1. LASIX [Concomitant]
     Indication: FLUID RETENTION
     Route: 048
  2. BENADRYL [Suspect]
     Route: 048
     Dates: start: 20110109, end: 20110110
  3. BENADRYL [Suspect]
     Indication: NASOPHARYNGITIS
     Dosage: EVERY 4 TO 6 HOURS AS NEEDED
     Route: 048
     Dates: start: 20110109, end: 20110110
  4. OMEPRAZOLE [Concomitant]
     Indication: GASTROOESOPHAGEAL REFLUX DISEASE
     Dosage: DAILY DOSE TEXT: 20MG UNSPECIFIED
     Route: 065
  5. METOPROLOL [Concomitant]
     Route: 048
  6. LOVASTATIN [Concomitant]
     Indication: HYPERCHOLESTEROLAEMIA
     Dosage: DAILY DOSE TEXT: 30MG UNSPECIFIED
     Route: 065
  7. PRAVASTATIN [Concomitant]
     Route: 048
  8. GLIPIZIDE [Concomitant]
     Indication: DIABETES MELLITUS
     Dosage: DAILY DOSE TEXT: 5MG UNSPECIFIED
     Route: 065
  9. TERAZOSIN [Concomitant]
     Indication: HYPERTENSION
     Dosage: DAILY DOSE TEXT: UNKNOWN
     Route: 065
  10. AMLODIPINE [Concomitant]
     Route: 048

REACTIONS (4)
  - OFF LABEL USE [None]
  - CERVICAL VERTEBRAL FRACTURE [None]
  - FALL [None]
  - DISORIENTATION [None]
